FAERS Safety Report 9278108 (Version 1)
Quarter: 2013Q2

REPORT INFORMATION
  Report Type: Spontaneous
  Country: US (occurrence: None)
  Receive Date: 20130503
  Receipt Date: 20130503
  Transmission Date: 20140414
  Serious: Yes (Other)
  Sender: FDA-Public Use
  Company Number: None

PATIENT
  Sex: Female

DRUGS (4)
  1. NATURAL ADVANTAGE SPF 15 ALL DAY MOISTURE WITH AHAS [Suspect]
     Indication: DRY SKIN PROPHYLAXIS
     Dosage: DAILY, SKIN CARE?2 WEEKS
  2. RETINOL [Suspect]
     Indication: THERAPEUTIC SKIN CARE TOPICAL
     Dosage: DAILY, SKIN CARE?2 WEEKS
  3. NATURAL ADVANTAGE TONER [Suspect]
     Indication: THERAPEUTIC SKIN CARE TOPICAL
     Dosage: DAILY, SKIN CARE?2 WEEKS
  4. NATURAL ADVANTAGE CLEANSING GEL [Suspect]
     Indication: THERAPEUTIC SKIN CARE TOPICAL
     Dosage: DAILY, SKIN CARE?2 WEEKS

REACTIONS (2)
  - Burns second degree [None]
  - Burns first degree [None]
